FAERS Safety Report 10577611 (Version 3)
Quarter: 2015Q1

REPORT INFORMATION
  Report Type: Report from Study
  Country: AU (occurrence: AU)
  Receive Date: 20141111
  Receipt Date: 20150323
  Transmission Date: 20150720
  Serious: No
  Sender: FDA-Public Use
  Company Number: AU-ABBVIE-14P-008-1306540-00

PATIENT
  Sex: Male

DRUGS (1)
  1. LUCRIN [Suspect]
     Active Substance: LEUPROLIDE ACETATE
     Indication: PRODUCT USED FOR UNKNOWN INDICATION
     Route: 065
     Dates: start: 20140526

REACTIONS (2)
  - Fall [Unknown]
  - Rib fracture [Recovered/Resolved]
